FAERS Safety Report 7187098-5 (Version None)
Quarter: 2010Q4

REPORT INFORMATION
  Report Type: 
  Country: None (occurrence: None)
  Receive Date: 20101222
  Receipt Date: 20101215
  Transmission Date: 20110411
  Serious: Yes (Disabling)
  Sender: FDA-Public Use
  Company Number: DE-ABBOTT-10P-062-0691618-00

PATIENT
  Age: 46 Year
  Sex: Female

DRUGS (2)
  1. ERGENYL CHRONO [Suspect]
     Indication: SCHIZOAFFECTIVE DISORDER
     Route: 048
     Dates: start: 20020101
  2. AMISULPRID [Suspect]
     Indication: SCHIZOAFFECTIVE DISORDER
     Route: 048
     Dates: start: 20020101

REACTIONS (1)
  - SOFT TISSUE INFLAMMATION [None]
